FAERS Safety Report 5892130-2 (Version None)
Quarter: 2008Q3

REPORT INFORMATION
  Report Type: 
  Country: None (occurrence: None)
  Receive Date: 20080908
  Receipt Date: 20080521
  Transmission Date: 20090109
  Serious: No
  Sender: FDA-Public Use
  Company Number: 002#2#2008-00440

PATIENT
  Age: 56 Year
  Sex: Male
  Weight: 84.8226 kg

DRUGS (6)
  1. NEUPRO [Suspect]
     Indication: PARKINSON'S DISEASE
     Dosage: MG/24H, , TRANSDERMAL
     Route: 062
     Dates: start: 20070501, end: 20080401
  2. AZILECT [Concomitant]
  3. PROVIGIL [Concomitant]
  4. COMTAN [Concomitant]
  5. EXELON [Concomitant]
  6. STALEVO 100 [Concomitant]

REACTIONS (4)
  - DIPLOPIA [None]
  - HALLUCINATION [None]
  - SOMNOLENCE [None]
  - SPEECH DISORDER [None]
